FAERS Safety Report 9249358 (Version 1)
Quarter: 2013Q2

REPORT INFORMATION
  Report Type: Spontaneous
  Country: US (occurrence: US)
  Receive Date: 20130423
  Receipt Date: 20130423
  Transmission Date: 20140414
  Serious: Yes (Hospitalization)
  Sender: FDA-Public Use
  Company Number: US-GLAXOSMITHKLINE-A1020236A

PATIENT
  Age: 41 Year
  Sex: Female

DRUGS (3)
  1. BENLYSTA [Suspect]
     Indication: SYSTEMIC LUPUS ERYTHEMATOSUS
     Route: 042
     Dates: start: 20120427
  2. UNSPECIFIED MEDICATIONS [Concomitant]
  3. CLONAZEPAM [Concomitant]
     Indication: ANXIETY

REACTIONS (19)
  - Febrile convulsion [Recovering/Resolving]
  - Systemic lupus erythematosus [Recovering/Resolving]
  - Renal failure [Recovering/Resolving]
  - Local swelling [Recovering/Resolving]
  - Erythema [Recovering/Resolving]
  - Pruritus [Recovering/Resolving]
  - Pain in extremity [Recovering/Resolving]
  - Muscle spasms [Recovering/Resolving]
  - Movement disorder [Recovering/Resolving]
  - Blood potassium decreased [Recovering/Resolving]
  - Blood creatinine increased [Recovering/Resolving]
  - Blood test abnormal [Recovering/Resolving]
  - Blood pressure increased [Recovering/Resolving]
  - Weight increased [Recovering/Resolving]
  - Body temperature increased [Recovering/Resolving]
  - Ammonia increased [Recovering/Resolving]
  - Red blood cell count decreased [Recovering/Resolving]
  - Oedema [Recovered/Resolved]
  - Blood pressure decreased [Recovering/Resolving]
